FAERS Safety Report 14303184 (Version 1)
Quarter: 2017Q4

REPORT INFORMATION
  Report Type: Spontaneous
  Country: IT (occurrence: IT)
  Receive Date: 20171219
  Receipt Date: 20171219
  Transmission Date: 20180321
  Serious: Yes (Other)
  Sender: FDA-Public Use
  Company Number: IT-PFIZER INC-2017105833

PATIENT
  Age: 73 Year
  Sex: Male

DRUGS (2)
  1. TAVOR (LORAZEPAM) [Suspect]
     Active Substance: LORAZEPAM
     Indication: INSOMNIA
     Dosage: 1 DF, AS NEEDED
     Route: 048
  2. AMIODARONE [Concomitant]
     Active Substance: AMIODARONE
     Indication: VENTRICULAR EXTRASYSTOLES
     Dosage: UNK, AS NEEDED
     Route: 048

REACTIONS (4)
  - Loss of consciousness [Unknown]
  - Syncope [Unknown]
  - Aphasia [Unknown]
  - Memory impairment [Unknown]

NARRATIVE: CASE EVENT DATE: 20161003
